FAERS Safety Report 13428186 (Version 1)
Quarter: 2017Q2

REPORT INFORMATION
  Report Type: Spontaneous
  Country: FR (occurrence: FR)
  Receive Date: 20170411
  Receipt Date: 20170411
  Transmission Date: 20170830
  Serious: Yes (Death, Disabling)
  Sender: FDA-Public Use
  Company Number: FR-PFIZER INC-2017150417

PATIENT
  Age: 42 Year
  Sex: Male

DRUGS (11)
  1. XANAX [Suspect]
     Active Substance: ALPRAZOLAM
     Dosage: 0.5 MG, 3X/DAY
     Route: 048
     Dates: end: 20170214
  2. XANAX [Suspect]
     Active Substance: ALPRAZOLAM
     Dosage: 2.5 MG, DAILY (1 TABLET THRICE DAILY (MORNING, MIDDAY, EVENING) AND 2 TABLETS AT BEDTIME)
     Route: 048
     Dates: start: 20170215, end: 20170220
  3. RAMIPRIL. [Concomitant]
     Active Substance: RAMIPRIL
     Dosage: 2.5 MG, 1X/DAY IN THE MORNING
     Route: 048
  4. CREON [Concomitant]
     Active Substance: PANCRELIPASE AMYLASE\PANCRELIPASE LIPASE\PANCRELIPASE PROTEASE
     Dosage: 2 DF, 3X/DAY
     Route: 048
  5. CETIRIZINE DIHYDROCHLORIDE [Concomitant]
     Active Substance: CETIRIZINE HYDROCHLORIDE
     Dosage: 1 DF, 1X/DAY
     Route: 048
     Dates: start: 201612
  6. SOLUPRED /00016201/ [Concomitant]
     Active Substance: PREDNISOLONE
     Dosage: 40 MG, 1X/DAY IN THE MORNING
     Route: 048
     Dates: start: 201612
  7. LYRICA [Suspect]
     Active Substance: PREGABALIN
     Dosage: 75 MG, 2X/DAY (IN THE MORNING AND EVENING )
     Route: 048
     Dates: start: 20170219, end: 20170220
  8. MORPHINE [Concomitant]
     Active Substance: MORPHINE
     Dosage: 5 MG PER HOUR
     Route: 042
     Dates: start: 201612
  9. LYRICA [Suspect]
     Active Substance: PREGABALIN
     Dosage: 50 MG, 2X/DAY (IN THE MORNING AND EVENING)
     Route: 048
     Dates: start: 20170215, end: 20170218
  10. MESTINON [Concomitant]
     Active Substance: PYRIDOSTIGMINE BROMIDE
     Dosage: 120 MG THRICE DAILY + 180 MG IN THE EVENING
     Route: 048
     Dates: start: 201612
  11. VENLAFAXINE [Concomitant]
     Active Substance: VENLAFAXINE HYDROCHLORIDE
     Dosage: 75 MG, 1X/DAY
     Route: 048

REACTIONS (3)
  - Myasthenia gravis [Not Recovered/Not Resolved]
  - Respiratory failure [Fatal]
  - Condition aggravated [Not Recovered/Not Resolved]

NARRATIVE: CASE EVENT DATE: 20170219
